FAERS Safety Report 10401342 (Version 1)
Quarter: 2014Q3

REPORT INFORMATION
  Report Type: Spontaneous
  Country: DE (occurrence: DE)
  Receive Date: 20140822
  Receipt Date: 20140822
  Transmission Date: 20150326
  Serious: Yes (Congenital Anomaly, Other)
  Sender: FDA-Public Use
  Company Number: DE-DRREDDYS-GER/GER/14/0042413

PATIENT
  Age: 1 Day
  Sex: Female
  Weight: 1.92 kg

DRUGS (2)
  1. METOPROLOL [Suspect]
     Active Substance: METOPROLOL
     Indication: PRODUCT USED FOR UNKNOWN INDICATION
     Route: 064
     Dates: start: 20120116, end: 20121006
  2. FOLIO FORTE [Concomitant]
     Active Substance: FOLIC ACID\VITAMINS
     Indication: PRODUCT USED FOR UNKNOWN INDICATION
     Route: 064
     Dates: start: 20120116, end: 20121006

REACTIONS (3)
  - Foetal exposure during pregnancy [Unknown]
  - Small for dates baby [Recovered/Resolved]
  - Microcephaly [Recovered/Resolved]

NARRATIVE: CASE EVENT DATE: 20121006
